FAERS Safety Report 9132788 (Version 1)
Quarter: 2013Q1

REPORT INFORMATION
  Report Type: Report from Study
  Country: FR (occurrence: FR)
  Receive Date: 20130301
  Receipt Date: 20130301
  Transmission Date: 20140127
  Serious: Yes (Hospitalization)
  Sender: FDA-Public Use
  Company Number: FR-ROCHE-1193708

PATIENT
  Age: 52 Year
  Sex: Female

DRUGS (36)
  1. TOCILIZUMAB [Suspect]
     Indication: RHEUMATOID ARTHRITIS
     Route: 041
     Dates: start: 20110322, end: 20120702
  2. TOCILIZUMAB [Suspect]
     Route: 041
     Dates: start: 20110422
  3. TOCILIZUMAB [Suspect]
     Route: 041
     Dates: start: 20110522
  4. TOCILIZUMAB [Suspect]
     Route: 041
     Dates: start: 20110617
  5. TOCILIZUMAB [Suspect]
     Route: 041
     Dates: start: 20110718
  6. TOCILIZUMAB [Suspect]
     Route: 041
     Dates: start: 20110816
  7. TOCILIZUMAB [Suspect]
     Route: 041
     Dates: start: 20111011
  8. TOCILIZUMAB [Suspect]
     Route: 041
     Dates: start: 20111108
  9. TOCILIZUMAB [Suspect]
     Route: 041
     Dates: start: 20111208
  10. TOCILIZUMAB [Suspect]
     Route: 041
     Dates: start: 20110105
  11. TOCILIZUMAB [Suspect]
     Route: 041
     Dates: start: 20120207
  12. TOCILIZUMAB [Suspect]
     Route: 041
     Dates: start: 20120306
  13. TOCILIZUMAB [Suspect]
     Route: 041
     Dates: start: 20120403
  14. TOCILIZUMAB [Suspect]
     Route: 041
     Dates: start: 20120503
  15. TOCILIZUMAB [Suspect]
     Route: 041
     Dates: start: 20120604
  16. TOCILIZUMAB [Suspect]
     Route: 041
     Dates: start: 20120702
  17. TOCILIZUMAB [Suspect]
     Route: 041
     Dates: start: 20120914
  18. CORTANCYL [Concomitant]
     Route: 065
     Dates: start: 20110322
  19. CORTANCYL [Concomitant]
     Route: 065
     Dates: start: 20110422
  20. CORTANCYL [Concomitant]
     Route: 065
     Dates: start: 20110617
  21. CORTANCYL [Concomitant]
     Route: 065
     Dates: start: 20110718
  22. CORTANCYL [Concomitant]
     Route: 065
     Dates: start: 20110816
  23. CORTANCYL [Concomitant]
     Route: 065
     Dates: start: 20110913
  24. CORTANCYL [Concomitant]
     Route: 065
     Dates: start: 20111011
  25. CORTANCYL [Concomitant]
     Route: 065
     Dates: start: 20111108
  26. CORTANCYL [Concomitant]
     Route: 065
     Dates: start: 20111208
  27. CORTANCYL [Concomitant]
     Route: 065
     Dates: start: 20111208
  28. CORTANCYL [Concomitant]
     Route: 065
     Dates: start: 20110105
  29. CORTANCYL [Concomitant]
     Route: 065
     Dates: start: 20120207
  30. CORTANCYL [Concomitant]
     Route: 065
     Dates: start: 20120306
  31. CORTANCYL [Concomitant]
     Route: 065
     Dates: start: 20120403
  32. CORTANCYL [Concomitant]
     Route: 065
     Dates: start: 20120503
  33. CORTANCYL [Concomitant]
     Route: 065
     Dates: start: 20120604
  34. CORTANCYL [Concomitant]
     Route: 065
     Dates: start: 20120702
  35. CORTANCYL [Concomitant]
     Route: 065
     Dates: start: 20120914
  36. BI-PROFENID [Concomitant]
     Route: 065

REACTIONS (5)
  - Rheumatoid arthritis [Recovered/Resolved]
  - Infusion related reaction [Recovered/Resolved]
  - Tooth infection [Recovered/Resolved]
  - Thrombocytopenia [Recovered/Resolved]
  - Ankle fracture [Recovered/Resolved]
